FAERS Safety Report 7285769-3 (Version None)
Quarter: 2011Q1

REPORT INFORMATION
  Report Type: 
  Country: None (occurrence: None)
  Receive Date: 20110210
  Receipt Date: 20110107
  Transmission Date: 20110831
  Serious: Yes (Hospitalization, Other)
  Sender: FDA-Public Use
  Company Number: PHHY2011IE01791

PATIENT
  Age: 34 Year
  Sex: Male

DRUGS (8)
  1. DIAZEPAM [Suspect]
     Dosage: 140 MG
  2. AMLODIPINE [Suspect]
  3. DOXORUBICIN HCL [Suspect]
  4. ACETAMINOPHEN W/ CODEINE [Suspect]
  5. TEMAZEPAM [Suspect]
     Dosage: 120 MG
  6. PERINDOPRIL ERBUMINE [Suspect]
  7. CITALOPRAM HYDROBROMIDE [Suspect]
     Dosage: 240 MG
  8. ANTI-FREEZE [Suspect]
     Dosage: 500 ML

REACTIONS (6)
  - HYPOXIA [None]
  - HYPOTENSION [None]
  - HEART RATE INCREASED [None]
  - MULTIPLE DRUG OVERDOSE [None]
  - METABOLIC ACIDOSIS [None]
  - COMA SCALE ABNORMAL [None]
